FAERS Safety Report 13873628 (Version 2)
Quarter: 2017Q3

REPORT INFORMATION
  Report Type: Spontaneous
  Country: IN (occurrence: IN)
  Receive Date: 20170816
  Receipt Date: 20170817
  Transmission Date: 20171127
  Serious: Yes (Other)
  Sender: FDA-Public Use
  Company Number: IN-TEVA-797760ISR

PATIENT
  Age: 65 Year
  Sex: Female
  Weight: 43 kg

DRUGS (10)
  1. ETHAMBUTOL [Suspect]
     Active Substance: ETHAMBUTOL HYDROCHLORIDE
     Indication: PRODUCT USED FOR UNKNOWN INDICATION
     Dosage: 800MG, QD
     Route: 048
     Dates: start: 20161129
  2. PAS [Suspect]
     Active Substance: AMINOSALICYLIC ACID
     Indication: PRODUCT USED FOR UNKNOWN INDICATION
     Dosage: 9.2G, QD
     Route: 048
     Dates: start: 20161129
  3. LINEZOLID. [Suspect]
     Active Substance: LINEZOLID
     Indication: PRODUCT USED FOR UNKNOWN INDICATION
     Dosage: 600MG, QD
     Route: 048
     Dates: start: 20170215
  4. BEDAQUILINE [Suspect]
     Active Substance: BEDAQUILINE
     Dates: start: 20170711
  5. CYCLOSERINE. [Suspect]
     Active Substance: CYCLOSERINE
     Indication: PRODUCT USED FOR UNKNOWN INDICATION
     Dosage: 500MG, QD
     Route: 048
     Dates: start: 20161129
  6. ETHIONAMIDE [Suspect]
     Active Substance: ETHIONAMIDE
     Indication: PRODUCT USED FOR UNKNOWN INDICATION
     Dosage: 500MG, QD
     Route: 048
     Dates: start: 20161129
  7. LINEZOLID. [Suspect]
     Active Substance: LINEZOLID
     Dates: start: 20170711
  8. BEDAQUILINE [Suspect]
     Active Substance: BEDAQUILINE
     Indication: PRODUCT USED FOR UNKNOWN INDICATION
     Dosage: 200MG, QD
     Route: 048
     Dates: start: 20170217, end: 20170707
  9. DELAMANID [Suspect]
     Active Substance: DELAMANID
     Indication: PRODUCT USED FOR UNKNOWN INDICATION
     Dosage: 200MG, QD
     Route: 048
     Dates: start: 20170217
  10. CLOFAZIMINE [Suspect]
     Active Substance: CLOFAZIMINE
     Indication: PRODUCT USED FOR UNKNOWN INDICATION
     Dosage: 100MG, QD
     Route: 048
     Dates: start: 20161129

REACTIONS (1)
  - Electrocardiogram QT prolonged [Recovered/Resolved]

NARRATIVE: CASE EVENT DATE: 20170707
